FAERS Safety Report 21747689 (Version 1)
Quarter: 2022Q4

REPORT INFORMATION
  Report Type: Spontaneous
  Country: JP (occurrence: JP)
  Receive Date: 20221219
  Receipt Date: 20221219
  Transmission Date: 20230113
  Serious: Yes (Other)
  Sender: FDA-Public Use
  Company Number: JP-BRISTOL-MYERS SQUIBB COMPANY-2022-153615

PATIENT
  Age: 58 Year
  Sex: Male

DRUGS (2)
  1. NIVOLUMAB [Suspect]
     Active Substance: NIVOLUMAB
     Indication: Nasal sinus cancer
     Dates: start: 201908, end: 202003
  2. AFLIBERCEPT [Suspect]
     Active Substance: AFLIBERCEPT
     Indication: Age-related macular degeneration
     Dosage: INTRAVITREAL AFLIBERCEPT INJECTION

REACTIONS (3)
  - Macular oedema [Recovered/Resolved]
  - Uveitis [Recovered/Resolved]
  - Choroidal detachment [Recovered/Resolved]
